FAERS Safety Report 20711902 (Version 1)
Quarter: 2022Q2

REPORT INFORMATION
  Report Type: Spontaneous
  Country: US (occurrence: US)
  Receive Date: 20220414
  Receipt Date: 20220414
  Transmission Date: 20220721
  Serious: Yes (Other)
  Sender: FDA-Public Use
  Company Number: US-BRISTOL-MYERS SQUIBB COMPANY-2022-017066

PATIENT
  Age: 27 Year
  Sex: Female

DRUGS (1)
  1. ZEPOSIA [Suspect]
     Active Substance: OZANIMOD HYDROCHLORIDE
     Indication: Multiple sclerosis
     Route: 065

REACTIONS (5)
  - Skin discolouration [Recovered/Resolved]
  - Suicidal ideation [Recovered/Resolved]
  - Adverse event [Recovered/Resolved]
  - Disability [Recovered/Resolved]
  - Gait disturbance [Recovered/Resolved]
